FAERS Safety Report 12388646 (Version 2)
Quarter: 2016Q3

REPORT INFORMATION
  Report Type: Spontaneous
  Country: US (occurrence: US)
  Receive Date: 20160520
  Receipt Date: 20160718
  Transmission Date: 20161109
  Serious: No
  Sender: FDA-Public Use
  Company Number: US-PFIZER INC-2016264106

PATIENT
  Age: 24 Year
  Sex: Female
  Weight: 89 kg

DRUGS (2)
  1. NEXPLANON [Concomitant]
     Active Substance: ETONOGESTREL
     Indication: CONTRACEPTION
     Dosage: UNK (CONTINUOUS ADMINISTRATION)
     Dates: start: 20160122
  2. EPINEPHRINE/LIDOCAINE HYDROCHLORIDE [Suspect]
     Active Substance: EPINEPHRINE\LIDOCAINE HYDROCHLORIDE
     Indication: ANAESTHESIA
     Dosage: 1 ML 1% LIDOCAINE WITH EPINEPHRINE, FREQUENCY: ONCE
     Route: 023
     Dates: start: 20160122, end: 20160122

REACTIONS (4)
  - Blister [Recovered/Resolved]
  - Injection site vesicles [Recovered/Resolved]
  - Implant site vesicles [None]
  - Pruritus generalised [Recovered/Resolved]

NARRATIVE: CASE EVENT DATE: 20160124
